FAERS Safety Report 5027535-5 (Version None)
Quarter: 2006Q2

REPORT INFORMATION
  Report Type: 
  Country: None (occurrence: None)
  Receive Date: 20060616
  Receipt Date: 20060607
  Transmission Date: 20061013
  Serious: Yes (Other)
  Sender: FDA-Public Use
  Company Number: PHRM2006FR01718

PATIENT
  Age: 58 Year
  Sex: Female

DRUGS (2)
  1. LEVOTHYROX [Concomitant]
     Route: 048
  2. LAMISIL [Suspect]
     Indication: NAIL TINEA
     Dosage: 1 DF, QD
     Route: 048
     Dates: end: 20060605

REACTIONS (2)
  - MONOPARESIS [None]
  - MUSCULOSKELETAL STIFFNESS [None]
